FAERS Safety Report 13303725 (Version 1)
Quarter: 2017Q1

REPORT INFORMATION
  Report Type: Report from Study
  Country: None (occurrence: GT)
  Receive Date: 20170307
  Receipt Date: 20170307
  Transmission Date: 20170428
  Serious: Yes (Hospitalization)
  Sender: FDA-Public Use
  Company Number: GT-ABBVIE-17P-069-1894245-00

PATIENT
  Age: 39 Year
  Sex: Female

DRUGS (1)
  1. ZEMPLAR [Suspect]
     Active Substance: PARICALCITOL
     Indication: HYPERPARATHYROIDISM SECONDARY
     Route: 042
     Dates: start: 20160802, end: 201702

REACTIONS (1)
  - Arteriovenous fistula thrombosis [Recovering/Resolving]

NARRATIVE: CASE EVENT DATE: 201702
